FAERS Safety Report 21554705 (Version 2)
Quarter: 2023Q1

REPORT INFORMATION
  Report Type: Spontaneous
  Country: AU (occurrence: AU)
  Receive Date: 20221104
  Receipt Date: 20230126
  Transmission Date: 20230418
  Serious: Yes (Other)
  Sender: FDA-Public Use
  Company Number: AU-MYLANLABS-2022M1117487

PATIENT
  Age: 31 Year
  Sex: Male

DRUGS (10)
  1. ATORVASTATIN [Suspect]
     Active Substance: ATORVASTATIN
     Indication: Product used for unknown indication
     Dosage: 80 MILLIGRAM
     Route: 065
  2. PANTOPRAZOLE [Suspect]
     Active Substance: PANTOPRAZOLE
     Indication: Product used for unknown indication
     Dosage: 20 MILLIGRAM, QD
     Route: 065
  3. METFORMIN [Suspect]
     Active Substance: METFORMIN HYDROCHLORIDE
     Indication: Product used for unknown indication
     Dosage: 500 MILLIGRAM, TID
     Route: 065
  4. ATENOLOL [Suspect]
     Active Substance: ATENOLOL
     Indication: Product used for unknown indication
     Dosage: 50 MILLIGRAM, QD
     Route: 065
  5. ARIPIPRAZOLE [Suspect]
     Active Substance: ARIPIPRAZOLE
     Indication: Schizophrenia
     Dosage: 400 MILLIGRAM, Q28D, 400 MILLIGRAM, Q4WEEKS
     Route: 030
  6. CLOZAPINE [Suspect]
     Active Substance: CLOZAPINE
     Indication: Schizophrenia
     Dosage: UNK, START: 10-JAN-2019
     Route: 065
  7. CLOZAPINE [Suspect]
     Active Substance: CLOZAPINE
     Dosage: 200 MILLIGRAM
     Route: 065
  8. REBOXETINE [Suspect]
     Active Substance: REBOXETINE
     Indication: Product used for unknown indication
     Dosage: 12 MILLIGRAM, QD
     Route: 065
  9. DIAZEPAM [Suspect]
     Active Substance: DIAZEPAM
     Indication: Anxiety
     Dosage: UNK
     Route: 065
  10. DIAZEPAM [Suspect]
     Active Substance: DIAZEPAM
     Dosage: 5 MILLIGRAM
     Route: 065

REACTIONS (19)
  - Cardiac disorder [Unknown]
  - Mitral valve incompetence [Unknown]
  - Obesity [Unknown]
  - Pulmonary valve incompetence [Unknown]
  - Tricuspid valve incompetence [Unknown]
  - Alanine aminotransferase increased [Unknown]
  - Blood cholesterol increased [Unknown]
  - Blood thyroid stimulating hormone increased [Unknown]
  - Blood triglycerides increased [Unknown]
  - C-reactive protein increased [Unknown]
  - Dehydration [Unknown]
  - Dizziness [Unknown]
  - Eosinophilia [Unknown]
  - Gamma-glutamyltransferase increased [Unknown]
  - Heart rate decreased [Unknown]
  - Low density lipoprotein increased [Unknown]
  - Orthostatic hypotension [Unknown]
  - Sinus tachycardia [Unknown]
  - Tachycardia [Not Recovered/Not Resolved]

NARRATIVE: CASE EVENT DATE: 20120618
